FAERS Safety Report 4678349-7 (Version None)
Quarter: 2005Q2

REPORT INFORMATION
  Report Type: 
  Country: None (occurrence: None)
  Receive Date: 20050527
  Receipt Date: 20050516
  Transmission Date: 20051028
  Serious: Yes (Hospitalization, Other)
  Sender: FDA-Public Use
  Company Number: 2005076681

PATIENT
  Age: 78 Year
  Sex: Female

DRUGS (10)
  1. HYDROXYZINE HCL [Suspect]
     Indication: ILL-DEFINED DISORDER
     Dosage: 25 MCG (25 MG, 1 IN 1 D), ORAL
     Route: 048
     Dates: start: 20040810
  2. PANTOPRAZOLE SODIUM [Suspect]
     Indication: MELAENA
     Dosage: 40 MG (40 MG, 1 IN 1 D), ORAL
     Route: 048
     Dates: start: 20040714
  3. KETOPROFEN [Suspect]
     Indication: FRACTURE
     Dosage: 50 MG (50 MG,  1 IN 1 D), ORAL
     Route: 048
     Dates: start: 20040808, end: 20040817
  4. ACETAMINOPHEN [Suspect]
     Indication: FRACTURE
     Dosage: 3 GRAM (1 GRAM, 1 IN 1 D), ORAL
     Route: 048
     Dates: start: 20040807
  5. CLORAZEPATE DIPOTASSIUM [Suspect]
     Indication: DEMENTIA
     Dosage: ORAL
     Route: 048
     Dates: end: 20040720
  6. CLAVULIN (AMOXICILLIN TRIHYDRATE, CLAVULANATE POTASSIUM) [Suspect]
     Indication: LUNG DISORDER
     Dosage: 3 GRAM (1 GRAM, 3 IN 1 D), ORAL
     Route: 048
     Dates: start: 20040716, end: 20040725
  7. MEPROBAMATE [Concomitant]
  8. CYAMEMAZINE (CYAMEMAZINE) [Concomitant]
  9. FOLIC ACID [Concomitant]
  10. VITAMIN B1 AND B6 (PYRIDOXIN, THIAMINE) [Concomitant]

REACTIONS (6)
  - FALL [None]
  - FEMUR FRACTURE [None]
  - HEPATITIS CHOLESTATIC [None]
  - LUNG DISORDER [None]
  - OVERDOSE [None]
  - PYREXIA [None]
